FAERS Safety Report 7251424-9 (Version None)
Quarter: 2011Q1

REPORT INFORMATION
  Report Type: 
  Country: None (occurrence: None)
  Receive Date: 20110128
  Receipt Date: 20110119
  Transmission Date: 20110831
  Serious: Yes (Hospitalization)
  Sender: FDA-Public Use
  Company Number: US-ASTRAZENECA-2011SE03291

PATIENT
  Age: 22736 Day
  Sex: Female
  Weight: 76.2 kg

DRUGS (3)
  1. HYZAAR [Concomitant]
     Indication: BLOOD PRESSURE
     Dosage: 100/12.5 MG DAILY
  2. PROZAC [Concomitant]
     Indication: ANXIETY
  3. SEROQUEL [Suspect]
     Indication: BIPOLAR DISORDER
     Route: 048

REACTIONS (3)
  - NAUSEA [None]
  - REGURGITATION [None]
  - DRUG DOSE OMISSION [None]
